FAERS Safety Report 4517715-7 (Version None)
Quarter: 2004Q4

REPORT INFORMATION
  Report Type: 
  Country: None (occurrence: None)
  Receive Date: 20041203
  Receipt Date: 20041103
  Transmission Date: 20050328
  Serious: Yes (Death, Life-Threatening, Hospitalization)
  Sender: FDA-Public Use
  Company Number: PHBS2004IT14871

PATIENT
  Age: 79 Year
  Sex: Male

DRUGS (7)
  1. TOLEP [Suspect]
     Indication: PARTIAL SEIZURES
     Dosage: 300 MG, BID
     Route: 048
  2. TOLEP [Suspect]
     Dosage: 150 MG, BID
     Dates: start: 20041020
  3. GARDENALE [Suspect]
     Indication: PARTIAL SEIZURES
     Dosage: UNK, UNK
     Route: 048
     Dates: start: 20041015
  4. GARDENALE [Suspect]
     Dosage: 50 MG/D
     Route: 048
  5. GARDENALE [Suspect]
     Dosage: 25 MG/D
     Route: 048
  6. GARDENALE [Suspect]
     Route: 048
     Dates: start: 20041025
  7. TETANUS GAMMA GLOBULIN [Suspect]
     Indication: PROPHYLAXIS
     Dosage: 500 UI/ML/ONCE/SINGLE
     Route: 030
     Dates: start: 20041021, end: 20041021

REACTIONS (14)
  - DRUG HYPERSENSITIVITY [None]
  - ERYTHEMA [None]
  - EXCORIATION [None]
  - GROIN ABSCESS [None]
  - INFECTION [None]
  - PRURITUS [None]
  - PSORIASIS [None]
  - PYREXIA [None]
  - RASH [None]
  - RASH PAPULAR [None]
  - SEBORRHOEIC KERATOSIS [None]
  - SKIN DESQUAMATION [None]
  - TINEA VERSICOLOUR [None]
  - TOXIC EPIDERMAL NECROLYSIS [None]
